FAERS Safety Report 19976212 (Version 1)
Quarter: 2021Q4

REPORT INFORMATION
  Report Type: Spontaneous
  Country: US (occurrence: US)
  Receive Date: 20211020
  Receipt Date: 20211020
  Transmission Date: 20220303
  Serious: Yes (Other)
  Sender: FDA-Public Use
  Company Number: US-TAKEDA-2021TUS063170

PATIENT
  Age: 28 Year
  Sex: Male
  Weight: 43.99 kg

DRUGS (4)
  1. MOTEGRITY [Suspect]
     Active Substance: PRUCALOPRIDE SUCCINATE
     Indication: Constipation
     Dosage: 2 MILLIGRAM, QD
     Route: 065
     Dates: start: 20211012, end: 20211012
  2. BACLOFEN [Concomitant]
     Active Substance: BACLOFEN
     Indication: Product used for unknown indication
     Route: 065
  3. TIZANIDINE [Concomitant]
     Active Substance: TIZANIDINE
     Indication: Product used for unknown indication
     Route: 065
  4. Vitamins and Minerals [Concomitant]
     Indication: Product used for unknown indication
     Route: 065

REACTIONS (2)
  - Cerebral palsy [Unknown]
  - Product administration error [Unknown]

NARRATIVE: CASE EVENT DATE: 20211012
